FAERS Safety Report 8509846-1 (Version None)
Quarter: 2012Q3

REPORT INFORMATION
  Report Type: 
  Country: None (occurrence: None)
  Receive Date: 20120713
  Receipt Date: 20120705
  Transmission Date: 20120928
  Serious: Yes (Hospitalization)
  Sender: FDA-Public Use
  Company Number: IT-PFIZER INC-2012163351

PATIENT
  Age: 72 Year
  Sex: Female

DRUGS (10)
  1. ASPIRIN [Concomitant]
     Indication: CARDIOVASCULAR EVENT PROPHYLAXIS
  2. NITROGLYCERIN [Concomitant]
     Indication: ANGINA PECTORIS
  3. AMLODIPINE BESILATE [Concomitant]
  4. REPAGLINIDE [Concomitant]
     Indication: DIABETES MELLITUS
  5. METFORMIN HYDROCHLORIDE [Concomitant]
     Indication: DIABETES MELLITUS
  6. CLONIDINE [Concomitant]
     Indication: HYPERTENSION
  7. FUROSEMIDE [Concomitant]
     Indication: HYPERTENSION
  8. RAMIPRIL [Suspect]
     Indication: HYPERTENSION
     Dosage: 20 MG DAILY
     Route: 048
     Dates: start: 20120417, end: 20120501
  9. SPIRIVA [Concomitant]
     Indication: CHRONIC OBSTRUCTIVE PULMONARY DISEASE
  10. PANTOPRAZOLE SODIUM [Concomitant]
     Indication: PROPHYLAXIS AGAINST GASTROINTESTINAL ULCER

REACTIONS (2)
  - RENAL FAILURE ACUTE [None]
  - TONGUE OEDEMA [None]
